FAERS Safety Report 24391913 (Version 1)
Quarter: 2024Q4

REPORT INFORMATION
  Report Type: Spontaneous
  Country: US (occurrence: None)
  Receive Date: 20241002
  Receipt Date: 20241002
  Transmission Date: 20250114
  Serious: No
  Sender: Public
  Company Number: None

PATIENT
  Age: 54 Year
  Sex: Male
  Weight: 90 kg

DRUGS (1)
  1. LEFLUNOMIDE [Suspect]
     Active Substance: LEFLUNOMIDE
     Indication: Pain
     Dosage: FREQUENCY : DAILY;?
     Route: 048

REACTIONS (2)
  - Pericarditis [None]
  - Acute myocardial infarction [None]

NARRATIVE: CASE EVENT DATE: 20240227
